FAERS Safety Report 8886586 (Version 1)
Quarter: 2012Q4

REPORT INFORMATION
  Report Type: 
  Country: US (occurrence: US)
  Receive Date: 20121105
  Receipt Date: 20121105
  Transmission Date: 20130627
  Serious: No
  Sender: FDA-Public Use
  Company Number: US-ELI_LILLY_AND_COMPANY-US201210008982

PATIENT
  Sex: Female

DRUGS (1)
  1. HUMULIN 50/50 [Suspect]
     Indication: DIABETES MELLITUS
     Dosage: UNK, unknown

REACTIONS (2)
  - Back disorder [Unknown]
  - Surgery [None]
